FAERS Safety Report 9432990 (Version 1)
Quarter: 2013Q3

REPORT INFORMATION
  Report Type: Spontaneous
  Country: US (occurrence: US)
  Receive Date: 20130731
  Receipt Date: 20130731
  Transmission Date: 20140515
  Serious: No
  Sender: FDA-Public Use
  Company Number: US-JNJFOC-20130703432

PATIENT
  Sex: Male

DRUGS (1)
  1. INVEGA [Suspect]
     Indication: POST CONCUSSION SYNDROME
     Route: 048

REACTIONS (2)
  - Treatment noncompliance [Recovered/Resolved]
  - Off label use [Unknown]
